FAERS Safety Report 7498555-6 (Version None)
Quarter: 2011Q2

REPORT INFORMATION
  Report Type: 
  Country: None (occurrence: None)
  Receive Date: 20110516
  Receipt Date: 20110502
  Transmission Date: 20111010
  Serious: Yes (Other)
  Sender: FDA-Public Use
  Company Number: 032078

PATIENT
  Sex: Female

DRUGS (7)
  1. PULMICORT [Concomitant]
  2. ESTREVA [Concomitant]
  3. SEREVENT [Concomitant]
  4. XYZAL [Suspect]
     Indication: HYPERSENSITIVITY
     Dosage: 5 MG, QD, ORAL
     Route: 048
     Dates: start: 20110105, end: 20110315
  5. ESTIMA [Concomitant]
  6. NASONEX [Concomitant]
  7. VENTOLIN [Concomitant]

REACTIONS (2)
  - DEPRESSION [None]
  - WEIGHT DECREASED [None]
